FAERS Safety Report 7745904-7 (Version None)
Quarter: 2011Q3

REPORT INFORMATION
  Report Type: 
  Country: None (occurrence: None)
  Receive Date: 20110913
  Receipt Date: 20110908
  Transmission Date: 20111222
  Serious: No
  Sender: FDA-Public Use
  Company Number: US-PFIZER INC-2011211749

PATIENT
  Age: 55 Year
  Sex: Male
  Weight: 81.6 kg

DRUGS (2)
  1. PHENELZINE SULFATE [Suspect]
     Indication: DEPRESSION
     Dosage: UNK
  2. NARDIL [Suspect]
     Indication: DEPRESSION
     Dosage: DAILY
     Route: 048
     Dates: start: 19900101

REACTIONS (2)
  - HEADACHE [None]
  - HEPATIC ENZYME INCREASED [None]
